FAERS Safety Report 7314740-8 (Version None)
Quarter: 2011Q1

REPORT INFORMATION
  Report Type: 
  Country: None (occurrence: None)
  Receive Date: 20110225
  Receipt Date: 20110106
  Transmission Date: 20110831
  Serious: No
  Sender: FDA-Public Use
  Company Number: US-MYLANLABS-2010S1021684

PATIENT
  Age: 15 Year
  Sex: Male
  Weight: 65.77 kg

DRUGS (3)
  1. CLARAVIS [Suspect]
     Indication: ACNE
     Route: 048
     Dates: start: 20100917, end: 20101020
  2. AMNESTEEM [Suspect]
     Indication: ACNE
     Route: 048
     Dates: start: 20101021, end: 20101123
  3. ALLERX DOSE PACK [Concomitant]

REACTIONS (5)
  - APHTHOUS STOMATITIS [None]
  - HEADACHE [None]
  - CHAPPED LIPS [None]
  - DRY SKIN [None]
  - EPISTAXIS [None]
